FAERS Safety Report 8609452-4 (Version None)
Quarter: 2012Q3

REPORT INFORMATION
  Report Type: 
  Country: None (occurrence: None)
  Receive Date: 20120821
  Receipt Date: 20120814
  Transmission Date: 20120928
  Serious: Yes (Hospitalization)
  Sender: FDA-Public Use
  Company Number: FR-GILEAD-2012-0059761

PATIENT
  Age: 49 Year
  Sex: Female

DRUGS (2)
  1. TRUVADA [Suspect]
     Indication: HIV INFECTION
     Dosage: 1 DF, QD
     Dates: start: 20120717, end: 20120723
  2. SUSTIVA [Suspect]
     Indication: HIV INFECTION
     Dosage: 1 DF, QD
     Dates: start: 20120717, end: 20120723

REACTIONS (4)
  - ORTHOSTATIC HYPOTENSION [None]
  - RASH [None]
  - DEHYDRATION [None]
  - OEDEMA [None]
